FAERS Safety Report 6806158-9 (Version None)
Quarter: 2010Q2

REPORT INFORMATION
  Report Type: 
  Country: None (occurrence: None)
  Receive Date: 20100629
  Receipt Date: 20080220
  Transmission Date: 20101027
  Serious: No
  Sender: FDA-Public Use
  Company Number: US-PFIZER INC-2008001178

PATIENT
  Sex: Male
  Weight: 96.363 kg

DRUGS (5)
  1. VIAGRA [Suspect]
     Indication: ERECTILE DYSFUNCTION
     Route: 048
     Dates: start: 20070101
  2. BENAZEPRIL HYDROCHLORIDE [Concomitant]
     Indication: HYPERTENSION
  3. HYDROCHLOROTHIAZIDE [Concomitant]
  4. FLOMAX [Concomitant]
     Indication: BLADDER DILATATION
  5. DIETHYLPROPION HYDROCHLORIDE TAB [Concomitant]

REACTIONS (1)
  - ERECTILE DYSFUNCTION [None]
